FAERS Safety Report 18010814 (Version 4)
Quarter: 2020Q3

REPORT INFORMATION
  Report Type: Other
  Country: IL (occurrence: IL)
  Receive Date: 20200711
  Receipt Date: 20200811
  Transmission Date: 20201103
  Serious: Yes (Congenital Anomaly, Other)
  Sender: FDA-Public Use
  Company Number: IL-MACLEODS PHARMACEUTICALS US LTD-MAC2020027088

PATIENT

DRUGS (3)
  1. BIKTARVY [Suspect]
     Active Substance: BICTEGRAVIR SODIUM\EMTRICITABINE\TENOFOVIR ALAFENAMIDE FUMARATE
     Indication: PRODUCT USED FOR UNKNOWN INDICATION
     Dosage: UNK, 1 TAB/CAPS, 1 COURSE PRIOR TO CONCEPTION DURING FIRST TRIMESTER OF PREGNANCY
     Route: 064
     Dates: end: 20191225
  2. ISENTRESS [Suspect]
     Active Substance: RALTEGRAVIR POTASSIUM
     Indication: PRODUCT USED FOR UNKNOWN INDICATION
     Dosage: UNK, 2 TAB/CAPS, 1 COURSE DURING SECOND TRIMESTER OF PREGNANCY
     Route: 064
     Dates: start: 20191225
  3. EMTRICITABINE/TENOFOVIR DISOPROXIL [Suspect]
     Active Substance: EMTRICITABINE\TENOFOVIR DISOPROXIL
     Indication: PRODUCT USED FOR UNKNOWN INDICATION
     Dosage: UNK, 1 TAB/CAPS, 1 COURSE DURING SECOND TRIMESTER OF PREGNANCY
     Route: 064
     Dates: start: 20191225

REACTIONS (2)
  - Foetal exposure during pregnancy [Unknown]
  - Ovarian cyst [Recovering/Resolving]
